FAERS Safety Report 6821523-1 (Version None)
Quarter: 2010Q3

REPORT INFORMATION
  Report Type: 
  Country: None (occurrence: None)
  Receive Date: 20100707
  Receipt Date: 20100317
  Transmission Date: 20110219
  Serious: No
  Sender: FDA-Public Use
  Company Number: US-PFIZER INC-2008038165

PATIENT
  Sex: Female
  Weight: 70 kg

DRUGS (7)
  1. SERTRALINE HCL [Suspect]
     Indication: GENERALISED ANXIETY DISORDER
     Dosage: 100 MG, 1X/DAY
     Route: 048
     Dates: start: 20090101, end: 20091118
  2. SIMVASTATIN [Concomitant]
     Indication: BLOOD CHOLESTEROL INCREASED
  3. ESTRADIOL [Concomitant]
  4. DIAZEPAM [Concomitant]
  5. ALBUTEROL [Concomitant]
     Indication: ASTHMA
  6. AMBIEN [Concomitant]
     Dosage: UNK
  7. DILANTIN [Concomitant]
     Dosage: UNK

REACTIONS (25)
  - ANXIETY [None]
  - BLADDER DISORDER [None]
  - BLEPHAROSPASM [None]
  - BURNING SENSATION [None]
  - DEPRESSION [None]
  - DISTURBANCE IN ATTENTION [None]
  - DIZZINESS [None]
  - DRUG INEFFECTIVE [None]
  - DRY MOUTH [None]
  - FEAR [None]
  - FEELING OF DESPAIR [None]
  - GASTROINTESTINAL DISORDER [None]
  - HEADACHE [None]
  - HEART RATE INCREASED [None]
  - HOT FLUSH [None]
  - NAUSEA [None]
  - NERVOUSNESS [None]
  - PANIC ATTACK [None]
  - PARAESTHESIA [None]
  - PRURITUS [None]
  - RETCHING [None]
  - SENSORY DISTURBANCE [None]
  - SKIN BURNING SENSATION [None]
  - SUNBURN [None]
  - TREMOR [None]
